FAERS Safety Report 18914998 (Version 1)
Quarter: 2021Q1

REPORT INFORMATION
  Report Type: Spontaneous
  Country: US (occurrence: US)
  Receive Date: 20210218
  Receipt Date: 20210218
  Transmission Date: 20210420
  Serious: Yes (Death)
  Sender: FDA-Public Use
  Company Number: None

PATIENT
  Age: 73 Year
  Sex: Female

DRUGS (1)
  1. BOSENTAN 62.5 MG TABLETS 60/BO (TEVA) [Suspect]
     Active Substance: BOSENTAN
     Indication: PULMONARY HYPERTENSION
     Route: 048
     Dates: start: 20200609, end: 20210204

REACTIONS (5)
  - Small intestinal obstruction [None]
  - Mental impairment [None]
  - Respiratory failure [None]
  - Hospice care [None]
  - Cerebrovascular accident [None]

NARRATIVE: CASE EVENT DATE: 20210204
